FAERS Safety Report 8956606 (Version 3)
Quarter: 2013Q1

REPORT INFORMATION
  Report Type: Report from Study
  Country: IT (occurrence: IT)
  Receive Date: 20121210
  Receipt Date: 20130321
  Transmission Date: 20140127
  Serious: Yes (Death)
  Sender: FDA-Public Use
  Company Number: IT-AMGEN-ITACT2012078969

PATIENT
  Age: 69 Year
  Sex: Male

DRUGS (3)
  1. DENOSUMAB [Suspect]
     Indication: METASTASES TO BONE
     Dosage: UNK
     Dates: start: 20120829, end: 20121009
  2. PACLITAXEL [Concomitant]
     Dosage: 60 MG/M2, QWK
     Dates: start: 20120921, end: 20121012
  3. BISPHOSPHONATES [Concomitant]
     Dosage: UNK
     Dates: start: 201109

REACTIONS (1)
  - Death [Fatal]
